FAERS Safety Report 6385799-X (Version None)
Quarter: 2009Q4

REPORT INFORMATION
  Report Type: 
  Country: None (occurrence: None)
  Receive Date: 20091002
  Receipt Date: 20081003
  Transmission Date: 20100525
  Serious: No
  Sender: FDA-Public Use
  Company Number: US-ASTRAZENECA-2008UW21679

PATIENT
  Age: 88 Year
  Sex: Female

DRUGS (4)
  1. ARIMIDEX [Suspect]
     Indication: BREAST CANCER
     Route: 048
     Dates: start: 20080501, end: 20080801
  2. ARIMIDEX [Suspect]
     Route: 048
     Dates: start: 20081002
  3. ALEVE [Concomitant]
  4. EXTRA STRENGTH TYLENOL [Concomitant]

REACTIONS (4)
  - ARTHRITIS [None]
  - BONE PAIN [None]
  - MUSCULAR WEAKNESS [None]
  - WEIGHT INCREASED [None]
